FAERS Safety Report 20077267 (Version 3)
Quarter: 2022Q1

REPORT INFORMATION
  Report Type: Report from Study
  Country: US (occurrence: US)
  Receive Date: 20211116
  Receipt Date: 20220104
  Transmission Date: 20220423
  Serious: Yes (Life-Threatening, Hospitalization, Other)
  Sender: FDA-Public Use
  Company Number: US-MYLANLABS-2021M1051602

PATIENT
  Age: 30 Year
  Sex: Female
  Weight: 64 kg

DRUGS (5)
  1. GLATIRAMER ACETATE [Suspect]
     Active Substance: GLATIRAMER ACETATE
     Indication: Relapsing-remitting multiple sclerosis
     Dosage: 40 MILLIGRAM, 3XW
     Route: 058
     Dates: start: 202107
  2. GLATIRAMER ACETATE [Suspect]
     Active Substance: GLATIRAMER ACETATE
     Dosage: 40 MILLIGRAM, 3XW
     Dates: start: 20211031
  3. DEVICE [Suspect]
     Active Substance: DEVICE
     Indication: Relapsing-remitting multiple sclerosis
     Dosage: UNK
  4. TYLENOL [Concomitant]
     Active Substance: ACETAMINOPHEN
     Dosage: UNK
  5. VITAMIN D [Concomitant]
     Active Substance: VITAMIN D NOS
     Dosage: UNK

REACTIONS (20)
  - Anaphylactic reaction [Unknown]
  - Injection site mass [Unknown]
  - Injection site urticaria [Unknown]
  - Needle issue [Unknown]
  - Dizziness [Recovered/Resolved]
  - Injection site pain [Unknown]
  - Injection site pruritus [Unknown]
  - Swelling face [Recovered/Resolved]
  - Abdominal discomfort [Recovered/Resolved]
  - Diarrhoea [Unknown]
  - Vomiting [Unknown]
  - Blood urine present [Unknown]
  - Fatigue [Unknown]
  - Feeling abnormal [Unknown]
  - Oropharyngeal discomfort [Recovered/Resolved]
  - Flushing [Recovered/Resolved]
  - Confusional state [Recovered/Resolved]
  - Panic attack [Recovered/Resolved]
  - Abdominal pain lower [Recovered/Resolved]
  - Abdominal pain upper [Recovered/Resolved]

NARRATIVE: CASE EVENT DATE: 20211031
